FAERS Safety Report 9384669 (Version 2)
Quarter: 2013Q3

REPORT INFORMATION
  Report Type: Spontaneous
  Country: IT (occurrence: IT)
  Receive Date: 20130705
  Receipt Date: 20130903
  Transmission Date: 20140515
  Serious: Yes (Hospitalization, Other)
  Sender: FDA-Public Use
  Company Number: IT-PFIZER INC-2013198793

PATIENT
  Age: 34 Year
  Sex: Female

DRUGS (2)
  1. SERTRALINE HCL [Suspect]
     Indication: INTENTIONAL OVERDOSE
     Dosage: 1000 MG, TOTAL DOSE
     Route: 048
     Dates: start: 20130630, end: 20130630
  2. SEROQUEL [Suspect]
     Indication: INTENTIONAL OVERDOSE
     Dosage: 30 DF, TOTAL DOSE
     Route: 048
     Dates: start: 20130630, end: 20130630

REACTIONS (4)
  - Psychomotor skills impaired [Recovered/Resolved]
  - Psychomotor retardation [Recovered/Resolved]
  - Drug abuse [Recovered/Resolved]
  - Alcohol abuse [Recovered/Resolved]
